FAERS Safety Report 7945145-4 (Version None)
Quarter: 2011Q4

REPORT INFORMATION
  Report Type: 
  Country: None (occurrence: None)
  Receive Date: 20111129
  Receipt Date: 20111121
  Transmission Date: 20120403
  Serious: Yes (Hospitalization)
  Sender: FDA-Public Use
  Company Number: PL-SANOFI-AVENTIS-2011SA076687

PATIENT
  Age: 60 Year
  Sex: Female

DRUGS (4)
  1. PROTON PUMP INHIBITORS [Concomitant]
  2. LEFLUNOMIDE [Suspect]
     Dates: start: 20110521, end: 20110831
  3. ALL OTHER THERAPEUTIC PRODUCTS [Concomitant]
  4. CORTICOSTEROID NOS [Concomitant]

REACTIONS (1)
  - JAUNDICE CHOLESTATIC [None]
